FAERS Safety Report 19949087 (Version 5)
Quarter: 2024Q1

REPORT INFORMATION
  Report Type: Spontaneous
  Country: US (occurrence: US)
  Receive Date: 20211013
  Receipt Date: 20240119
  Transmission Date: 20240409
  Serious: Yes (Disabling, Other)
  Sender: FDA-Public Use
  Company Number: US-ORGANON-O2110USA000859

PATIENT
  Sex: Female

DRUGS (3)
  1. SINGULAIR [Suspect]
     Active Substance: MONTELUKAST SODIUM
     Indication: Asthma
     Dosage: 10 MILLIGRAM
     Route: 048
     Dates: start: 2005
  2. SINGULAIR [Suspect]
     Active Substance: MONTELUKAST SODIUM
     Dosage: 10 MILLIGRAM
     Route: 048
     Dates: start: 2006, end: 2020
  3. SINGULAIR [Suspect]
     Active Substance: MONTELUKAST SODIUM
     Dosage: 10 MILLIGRAM
     Route: 048
     Dates: start: 2020, end: 2021

REACTIONS (64)
  - Neuropsychological symptoms [Not Recovered/Not Resolved]
  - Major depression [Recovered/Resolved]
  - Obsessive-compulsive disorder [Not Recovered/Not Resolved]
  - Anxiety [Recovered/Resolved]
  - Post-traumatic stress disorder [Not Recovered/Not Resolved]
  - Sjogren^s syndrome [Unknown]
  - Suicidal ideation [Unknown]
  - Intentional self-injury [Unknown]
  - Suicide attempt [Unknown]
  - Raynaud^s phenomenon [Unknown]
  - Trigeminal neuralgia [Unknown]
  - Glossopharyngeal neuralgia [Unknown]
  - Ophthalmic migraine [Unknown]
  - Asthma [Unknown]
  - Gastrooesophageal reflux disease [Unknown]
  - Lymphadenopathy [Recovered/Resolved]
  - Dry eye [Unknown]
  - Dry mouth [Unknown]
  - Nasal ulcer [Unknown]
  - Cough [Unknown]
  - Neck pain [Not Recovered/Not Resolved]
  - Back pain [Unknown]
  - Pulmonary mass [Recovering/Resolving]
  - Laryngitis [Unknown]
  - Dysphonia [Unknown]
  - Dry mouth [Unknown]
  - Chest pain [Unknown]
  - Decreased appetite [Unknown]
  - Aphasia [Unknown]
  - Ataxia [Unknown]
  - Diplopia [Unknown]
  - Urinary incontinence [Unknown]
  - Anal incontinence [Unknown]
  - Intervertebral disc protrusion [Unknown]
  - Clavicle fracture [Unknown]
  - Muscular weakness [Unknown]
  - Anhedonia [Unknown]
  - Helplessness [Unknown]
  - Musculoskeletal stiffness [Unknown]
  - Breast tenderness [Unknown]
  - Oropharyngeal pain [Unknown]
  - Obesity [Unknown]
  - Sleep disorder [Unknown]
  - Dyspnoea [Unknown]
  - Nausea [Unknown]
  - Fatigue [Unknown]
  - Generalised anxiety disorder [Recovering/Resolving]
  - Feeling of despair [Unknown]
  - Paraesthesia [Unknown]
  - Nasal congestion [Unknown]
  - Dyspepsia [Unknown]
  - Myalgia [Unknown]
  - Dizziness [Not Recovered/Not Resolved]
  - Depressed mood [Unknown]
  - Arthralgia [Unknown]
  - Paraesthesia [Not Recovered/Not Resolved]
  - Paraesthesia [Not Recovered/Not Resolved]
  - Palpitations [Unknown]
  - Hypoaesthesia [Unknown]
  - Depression [Not Recovered/Not Resolved]
  - Headache [Unknown]
  - Agitation [Unknown]
  - Irritability [Unknown]
  - Oedema [Unknown]

NARRATIVE: CASE EVENT DATE: 20050101
